FAERS Safety Report 7212848-9 (Version None)
Quarter: 2011Q1

REPORT INFORMATION
  Report Type: 
  Country: None (occurrence: None)
  Receive Date: 20110106
  Receipt Date: 20101230
  Transmission Date: 20110831
  Serious: Yes (Hospitalization)
  Sender: FDA-Public Use
  Company Number: US-ROCHE-751401

PATIENT
  Age: 58 Year
  Sex: Male
  Weight: 79.2 kg

DRUGS (2)
  1. BEVACIZUMAB [Suspect]
     Indication: GLIOBLASTOMA MULTIFORME
     Dosage: OVER 30-90 MINUTES.
     Route: 042
     Dates: start: 20100101, end: 20101101
  2. TEMOZOLOMIDE [Suspect]
     Indication: GLIOBLASTOMA MULTIFORME
     Dosage: 150-200 MG/M2 PO ON DAYS 1-5
     Route: 048

REACTIONS (1)
  - CONVULSION [None]
